FAERS Safety Report 5176884-9 (Version None)
Quarter: 2006Q4

REPORT INFORMATION
  Report Type: 
  Country: None (occurrence: None)
  Receive Date: 20061218
  Receipt Date: 20061211
  Transmission Date: 20070319
  Serious: Yes (Death, Hospitalization)
  Sender: FDA-Public Use
  Company Number: PHEH2006US15208

PATIENT
  Age: 82 Year
  Sex: Male
  Weight: 68.027 kg

DRUGS (12)
  1. STARLIX [Suspect]
     Indication: DIABETES MELLITUS
     Dosage: 120 MG, UNK
     Route: 048
     Dates: start: 20030305, end: 20040210
  2. INSULIN [Concomitant]
  3. LANTUS [Concomitant]
  4. LIPITOR [Concomitant]
  5. ASPIRIN [Concomitant]
  6. COREG [Concomitant]
  7. IMDUR [Concomitant]
  8. LASIX [Concomitant]
  9. ALLEGRA [Concomitant]
  10. LISINOPRIL [Concomitant]
  11. ATROVENT [Concomitant]
  12. HYDROXYZINE [Concomitant]

REACTIONS (4)
  - CARDIO-RESPIRATORY ARREST [None]
  - DEPRESSED LEVEL OF CONSCIOUSNESS [None]
  - HYPOGLYCAEMIA [None]
  - MUSCLE TWITCHING [None]
